FAERS Safety Report 8241028-3 (Version None)
Quarter: 2012Q1

REPORT INFORMATION
  Report Type: 
  Country: None (occurrence: None)
  Receive Date: 20120328
  Receipt Date: 20120320
  Transmission Date: 20120608
  Serious: Yes (Life-Threatening, Hospitalization)
  Sender: FDA-Public Use
  Company Number: DE-MERCK-1203DEU00044

PATIENT
  Age: 79 Year
  Sex: Male
  Weight: 80 kg

DRUGS (5)
  1. PRINIVIL [Concomitant]
     Indication: HYPERTENSION
     Route: 048
  2. XIPAMIDE [Concomitant]
     Indication: HYPERTENSION
     Route: 048
  3. PHENPROCOUMON [Concomitant]
     Indication: PULMONARY EMBOLISM
     Route: 048
     Dates: start: 20070101
  4. TERAZOSIN HYDROCHLORIDE [Concomitant]
     Indication: BENIGN PROSTATIC HYPERPLASIA
     Route: 048
  5. PROSCAR [Suspect]
     Indication: BENIGN PROSTATIC HYPERPLASIA
     Route: 048
     Dates: start: 20101101, end: 20110201

REACTIONS (2)
  - HAEMORRHAGIC DIATHESIS [None]
  - THROMBOCYTOPENIA [None]
